FAERS Safety Report 4675309-7 (Version None)
Quarter: 2005Q2

REPORT INFORMATION
  Report Type: 
  Country: None (occurrence: None)
  Receive Date: 20050525
  Receipt Date: 20050517
  Transmission Date: 20051028
  Serious: Yes (Life-Threatening)
  Sender: FDA-Public Use
  Company Number: 200510259BCA

PATIENT
  Age: 60 Year
  Sex: Male
  Weight: 79 kg

DRUGS (10)
  1. AVELOX [Suspect]
     Indication: BRONCHITIS
     Dosage: 400 MG, QD, ORAL
     Route: 048
     Dates: start: 20050510, end: 20050511
  2. ALTACE [Concomitant]
  3. COREG [Concomitant]
  4. LANOXIN [Concomitant]
  5. LASIX [Concomitant]
  6. NORVASC [Concomitant]
  7. NITROGLYCERIN [Concomitant]
  8. ATACAND [Concomitant]
  9. COUMADIN [Concomitant]
  10. PROVACHOL [Concomitant]

REACTIONS (4)
  - HYPOTENSION [None]
  - TACHYCARDIA [None]
  - VENTRICULAR ARRHYTHMIA [None]
  - VENTRICULAR FIBRILLATION [None]
